FAERS Safety Report 25746084 (Version 2)
Quarter: 2025Q4

REPORT INFORMATION
  Report Type: Report from Study
  Country: EG (occurrence: EG)
  Receive Date: 20250901
  Receipt Date: 20251202
  Transmission Date: 20260117
  Serious: Yes (Death, Hospitalization)
  Sender: ROCHE
  Company Number: EG-ROCHE-10000372025

PATIENT
  Age: 65 Year
  Sex: Female
  Weight: 55 kg

DRUGS (6)
  1. HERCEPTIN [Suspect]
     Active Substance: TRASTUZUMAB
     Indication: Breast cancer
     Route: 058
     Dates: start: 20240226, end: 20250817
  2. HERCEPTIN [Suspect]
     Active Substance: TRASTUZUMAB
     Indication: Bone cancer
     Route: 058
     Dates: start: 20220101
  3. AROMASIN [Suspect]
     Active Substance: EXEMESTANE
     Indication: Bone cancer
     Route: 065
  4. IBRANCE [Suspect]
     Active Substance: PALBOCICLIB
     Indication: Bone cancer
     Route: 048
  5. HYZAAR [Concomitant]
     Active Substance: HYDROCHLOROTHIAZIDE\LOSARTAN POTASSIUM
     Indication: Hypertension
     Route: 048
  6. CRESTOR [Concomitant]
     Active Substance: ROSUVASTATIN CALCIUM
     Indication: Blood cholesterol increased
     Route: 048

REACTIONS (3)
  - Breast cancer metastatic [Fatal]
  - Hypersensitivity [Unknown]
  - Medication error [Unknown]

NARRATIVE: CASE EVENT DATE: 20220101
